FAERS Safety Report 10673227 (Version 2)
Quarter: 2015Q1

REPORT INFORMATION
  Report Type: Report from Study
  Country: CA (occurrence: CA)
  Receive Date: 20141224
  Receipt Date: 20150217
  Transmission Date: 20150720
  Serious: Yes (Hospitalization, Other)
  Sender: FDA-Public Use
  Company Number: CA-ROCHE-1513234

PATIENT
  Age: 68 Year
  Sex: Female

DRUGS (5)
  1. RITUXAN [Suspect]
     Active Substance: RITUXIMAB
     Indication: RHEUMATOID ARTHRITIS
     Dosage: FREQUENCY:  DAY 1 AND DAY 15
     Route: 042
     Dates: start: 201005
  2. RAMIPRIL. [Concomitant]
     Active Substance: RAMIPRIL
  3. SULFASALAZINE. [Concomitant]
     Active Substance: SULFASALAZINE
  4. PLAQUENIL [Concomitant]
     Active Substance: HYDROXYCHLOROQUINE SULFATE
  5. FUROSEMIDE. [Concomitant]
     Active Substance: FUROSEMIDE

REACTIONS (4)
  - Atrial fibrillation [Unknown]
  - Rheumatoid arthritis [Not Recovered/Not Resolved]
  - Pneumonia [Unknown]
  - Breast cancer [Unknown]

NARRATIVE: CASE EVENT DATE: 201309
